FAERS Safety Report 17571772 (Version 4)
Quarter: 2021Q2

REPORT INFORMATION
  Report Type: Spontaneous
  Country: JP (occurrence: JP)
  Receive Date: 20200323
  Receipt Date: 20210419
  Transmission Date: 20210716
  Serious: Yes (Hospitalization, Other)
  Sender: FDA-Public Use
  Company Number: JP-AMGEN-JPNSP2020046353

PATIENT
  Age: 49 Year
  Sex: Male
  Weight: 53.1 kg

DRUGS (10)
  1. KIKLIN [Concomitant]
     Active Substance: BIXALOMER
     Dosage: 3000 MILLIGRAM
     Route: 048
  2. PARSABIV [Suspect]
     Active Substance: ETELCALCETIDE HYDROCHLORIDE
     Indication: HYPERPARATHYROIDISM SECONDARY
     Dosage: 5 MG, Q56H
     Route: 010
     Dates: start: 20190226, end: 20190328
  3. PARSABIV [Suspect]
     Active Substance: ETELCALCETIDE HYDROCHLORIDE
     Dosage: 2.5 MG, Q56H
     Route: 010
     Dates: start: 20190810
  4. CALTAN [Concomitant]
     Active Substance: CALCIUM CARBONATE
     Dosage: 3000 MILLIGRAM
     Route: 048
  5. FULSTAN [Concomitant]
     Dosage: 0.3 UG, EVERYDAY
     Route: 048
     Dates: start: 20200908, end: 20210327
  6. FULSTAN [Concomitant]
     Dosage: 0.15 UG, EVERYDAY
     Route: 048
     Dates: start: 20190621, end: 20200907
  7. FULSTAN [Concomitant]
     Dosage: 0.15 UG, EVERYDAY
     Route: 048
     Dates: start: 20210328
  8. PARSABIV [Suspect]
     Active Substance: ETELCALCETIDE HYDROCHLORIDE
     Dosage: 5 MG, Q56H
     Route: 010
     Dates: start: 20190720, end: 20190808
  9. PARSABIV [Suspect]
     Active Substance: ETELCALCETIDE HYDROCHLORIDE
     Dosage: 7.5 MG, Q56H
     Route: 010
     Dates: start: 20190330, end: 20190718
  10. WARKMIN [Concomitant]
     Active Substance: ALFACALCIDOL
     Dosage: 0.5 MICROGRAM, QD
     Route: 065
     Dates: start: 20180118, end: 20190620

REACTIONS (2)
  - Acute myocardial infarction [Recovered/Resolved]
  - Myocardial ischaemia [Recovered/Resolved]

NARRATIVE: CASE EVENT DATE: 20190812
